FAERS Safety Report 12069600 (Version 2)
Quarter: 2016Q1

REPORT INFORMATION
  Report Type: Spontaneous
  Country: US (occurrence: US)
  Receive Date: 20160211
  Receipt Date: 20160212
  Transmission Date: 20160526
  Serious: No
  Sender: FDA-Public Use
  Company Number: US-009507513-1602USA005464

PATIENT
  Age: 18 Year
  Sex: Female
  Weight: 63.49 kg

DRUGS (1)
  1. NEXPLANON [Suspect]
     Active Substance: ETONOGESTREL
     Indication: CONTRACEPTION
     Dosage: 1 DF, UNK,  3 YEAR IMPLANT, IMPLANT IS IN LEFT ARM
     Route: 059
     Dates: start: 20160115

REACTIONS (5)
  - Menstruation irregular [Unknown]
  - Pain [Unknown]
  - Back pain [Unknown]
  - Menorrhagia [Unknown]
  - Muscle spasms [Unknown]

NARRATIVE: CASE EVENT DATE: 20160122
